FAERS Safety Report 8249055-7 (Version None)
Quarter: 2012Q1

REPORT INFORMATION
  Report Type: 
  Country: None (occurrence: None)
  Receive Date: 20120327
  Receipt Date: 20120309
  Transmission Date: 20120608
  Serious: Yes (Hospitalization, Other)
  Sender: FDA-Public Use
  Company Number: 20090484

PATIENT
  Age: 34 Year
  Sex: Female

DRUGS (18)
  1. ARANESP [Concomitant]
  2. UN-ALFA (ALFACALCIDOL) [Concomitant]
  3. ANTIBIOTREX GEL(ISOTRETINOIN, ERYTHROMYCIN) [Concomitant]
  4. KAYEXALATE(SODIUM POLYSTRYRENE SULFONATE) [Concomitant]
  5. NEORAL [Concomitant]
  6. CEFPODOXIME PROXETIL [Concomitant]
  7. VENOFER [Suspect]
     Indication: PRODUCT USED FOR UNKNOWN INDICATION
     Dosage: INTRAVENOUS
     Route: 042
     Dates: start: 20080613, end: 20081217
  8. AMLODIPINE [Concomitant]
  9. RENAGEL [Concomitant]
  10. FOLIC ACID [Concomitant]
  11. ATARAX(HYDROXIZINE) [Concomitant]
  12. LASILIX (FUROSEMIDE) [Concomitant]
  13. MUCOMYST [Concomitant]
  14. RHINOFLUIMUCIL (TUAMINOHEPTANE HEMISULFATE) [Concomitant]
  15. NEXIUM [Concomitant]
  16. PIVALONE 1% (SUSPENSION)(TIXOCORTOL PIVALATE) [Concomitant]
  17. AZATHIOPRINE [Concomitant]
  18. RUBOZINC(ZINC GLUCONATE) [Concomitant]

REACTIONS (4)
  - STILLBIRTH [None]
  - PREGNANCY [None]
  - MATERNAL EXPOSURE DURING PREGNANCY [None]
  - PREMATURE DELIVERY [None]
